FAERS Safety Report 5845059-X (Version None)
Quarter: 2008Q3

REPORT INFORMATION
  Report Type: 
  Country: None (occurrence: None)
  Receive Date: 20080813
  Receipt Date: 20080813
  Transmission Date: 20090109
  Serious: Yes (Hospitalization)
  Sender: FDA-Public Use
  Company Number: None

PATIENT
  Age: 63 Year
  Sex: Male
  Weight: 94 kg

DRUGS (1)
  1. ASPIRIN [Suspect]
     Indication: MUSCULOSKELETAL PAIN
     Dosage: 325 MG 5-6 TIMES PER DAY PO
     Route: 048
     Dates: start: 20050629, end: 20080629

REACTIONS (3)
  - ABDOMINAL DISCOMFORT [None]
  - RECTAL HAEMORRHAGE [None]
  - ULCER [None]
